FAERS Safety Report 15584739 (Version 3)
Quarter: 2019Q1

REPORT INFORMATION
  Report Type: Spontaneous
  Country: JP (occurrence: JP)
  Receive Date: 20181102
  Receipt Date: 20190129
  Transmission Date: 20190417
  Serious: Yes (Other)
  Sender: FDA-Public Use
  Company Number: JP-SHIRE-JP201840453

PATIENT
  Sex: Male
  Weight: 60 kg

DRUGS (5)
  1. ADVATE [Concomitant]
     Active Substance: ANTIHEMOPHILIC FACTOR, HUMAN RECOMBINANT
     Indication: FACTOR VIII DEFICIENCY
     Dosage: 3000 IU, 3X A WEEK
     Route: 042
     Dates: start: 201811
  2. ADYNOVATE [Suspect]
     Active Substance: ANTIHEMOPHILIC FACTOR, HUMAN RECOMBINANT
     Dosage: 3000 INTERNATIONAL UNIT, 2X A WEEK
     Route: 042
     Dates: start: 201806
  3. ADYNOVATE [Suspect]
     Active Substance: ANTIHEMOPHILIC FACTOR, HUMAN RECOMBINANT
     Dosage: 4000 INTERNATIONAL UNIT, 2X A WEEK
     Route: 042
     Dates: start: 201809
  4. ADYNOVATE [Suspect]
     Active Substance: ANTIHEMOPHILIC FACTOR, HUMAN RECOMBINANT
     Indication: FACTOR VIII DEFICIENCY
     Dosage: 2000 INTERNATIONAL UNIT, 2X A WEEK
     Route: 042
     Dates: start: 201712
  5. ADYNOVATE [Suspect]
     Active Substance: ANTIHEMOPHILIC FACTOR, HUMAN RECOMBINANT
     Indication: SUPPLEMENTATION THERAPY
     Dosage: 2500 INTERNATIONAL UNIT, 2X A WEEK
     Route: 042
     Dates: start: 201803

REACTIONS (1)
  - Haemophilic pseudotumour [Unknown]

NARRATIVE: CASE EVENT DATE: 2018
